FAERS Safety Report 5252195-8 (Version None)
Quarter: 2007Q1

REPORT INFORMATION
  Report Type: 
  Country: None (occurrence: None)
  Receive Date: 20061201
  Receipt Date: 20060829
  Transmission Date: 20070707
  Serious: No
  Sender: FDA-Public Use
  Company Number: 2006PV020426

PATIENT
  Age: 61 Year
  Sex: Female
  Weight: 113.8529 kg

DRUGS (5)
  1. BYETTA [Suspect]
     Indication: DIABETES MELLITUS NON-INSULIN-DEPENDENT
     Dosage: SEE IMAGE
     Route: 058
     Dates: start: 20060609, end: 20060701
  2. BYETTA [Suspect]
     Indication: DIABETES MELLITUS NON-INSULIN-DEPENDENT
     Dosage: SEE IMAGE
     Route: 058
     Dates: start: 20060707
  3. METFORMIN HCL [Concomitant]
  4. CLONIDINE [Concomitant]
  5. COREG [Concomitant]

REACTIONS (1)
  - BLOOD GLUCOSE INCREASED [None]
